FAERS Safety Report 25622325 (Version 4)
Quarter: 2025Q4

REPORT INFORMATION
  Report Type: Spontaneous
  Country: US (occurrence: US)
  Receive Date: 20250730
  Receipt Date: 20251209
  Transmission Date: 20260117
  Serious: Yes (Other)
  Sender: BAYER HEALTHCARE PHARMACEUTICALS INC.
  Company Number: US-BAYER-2025A100747

PATIENT
  Sex: Male

DRUGS (7)
  1. JIVI [Suspect]
     Active Substance: DAMOCTOCOG ALFA PEGOL
     Indication: Factor VIII deficiency
     Dosage: STRENGTH: 1000: INFUSED: 3000 SLOW IV PUSH
     Route: 042
     Dates: start: 201805
  2. JIVI [Suspect]
     Active Substance: DAMOCTOCOG ALFA PEGOL
     Indication: Prophylaxis
     Dosage: STRENGTH: 2000 INFUSED : 3000 SLOW IV PUSH AND AS NEEDED
     Route: 042
     Dates: start: 201805
  3. JIVI [Suspect]
     Active Substance: DAMOCTOCOG ALFA PEGOL
     Indication: Factor VIII deficiency
     Dosage: 3000 U, BIW, JIVI 3000 IU: INFUSE~3000 UNITS
     Route: 042
     Dates: start: 202002
  4. JIVI [Suspect]
     Active Substance: DAMOCTOCOG ALFA PEGOL
     Indication: Factor VIII deficiency
     Dosage: 1 DF, JIVI 3000 IU: INFUSE~3000 UNITS
     Route: 042
  5. JIVI [Suspect]
     Active Substance: DAMOCTOCOG ALFA PEGOL
     Indication: Factor VIII deficiency
     Dosage: 2 DF, JIVI 3000 IU: INFUSE~3000 UNITS
     Route: 042
  6. JIVI [Suspect]
     Active Substance: DAMOCTOCOG ALFA PEGOL
     Indication: Factor VIII deficiency
     Dosage: 1 DF
  7. JIVI [Suspect]
     Active Substance: DAMOCTOCOG ALFA PEGOL
     Indication: Factor VIII deficiency
     Dosage: 3000 UNITS (2700-3300) SLOW IV PUSH

REACTIONS (5)
  - Haemarthrosis [Recovered/Resolved]
  - Haemarthrosis [Unknown]
  - Haemarthrosis [Recovered/Resolved]
  - Haemarthrosis [None]
  - Haemorrhage [None]
